FAERS Safety Report 10643991 (Version 5)
Quarter: 2015Q1

REPORT INFORMATION
  Report Type: Spontaneous
  Country: US (occurrence: US)
  Receive Date: 20141210
  Receipt Date: 20150312
  Transmission Date: 20150720
  Serious: Yes (Hospitalization, Disabling, Other)
  Sender: FDA-Public Use
  Company Number: US-009507513-1204USA04491

PATIENT
  Sex: Male
  Weight: 63.49 kg

DRUGS (3)
  1. PROPECIA [Suspect]
     Active Substance: FINASTERIDE
     Indication: ANDROGENETIC ALOPECIA
  2. PROPECIA [Suspect]
     Active Substance: FINASTERIDE
     Indication: ALOPECIA
     Dosage: 1 MG, UNK
     Route: 048
     Dates: start: 20100204, end: 20100310
  3. FINASTERIDE. [Suspect]
     Active Substance: FINASTERIDE
     Indication: ALOPECIA
     Dosage: 5 MG, UNK
     Route: 048
     Dates: start: 20100204, end: 20100310

REACTIONS (16)
  - Loss of libido [Not Recovered/Not Resolved]
  - Ejaculation failure [Not Recovered/Not Resolved]
  - Drug administration error [Unknown]
  - Cognitive disorder [Not Recovered/Not Resolved]
  - Depression [Not Recovered/Not Resolved]
  - Appendicectomy [Unknown]
  - Tonsillectomy [Unknown]
  - Surgery [Unknown]
  - Bone swelling [Unknown]
  - Ejaculation disorder [Not Recovered/Not Resolved]
  - Hernia repair [Unknown]
  - Erectile dysfunction [Not Recovered/Not Resolved]
  - Endocrine disorder [Unknown]
  - Anxiety [Not Recovered/Not Resolved]
  - Sexual dysfunction [Not Recovered/Not Resolved]
  - Sports injury [Unknown]

NARRATIVE: CASE EVENT DATE: 20100204
